FAERS Safety Report 12927255 (Version 1)
Quarter: 2016Q4

REPORT INFORMATION
  Report Type: Spontaneous
  Country: PL (occurrence: PL)
  Receive Date: 20161109
  Receipt Date: 20161109
  Transmission Date: 20170207
  Serious: Yes (Death, Other)
  Sender: FDA-Public Use
  Company Number: PL-ASTRAZENECA-2016SF13295

PATIENT
  Age: 72 Year
  Sex: Female

DRUGS (2)
  1. GEFITINIB [Suspect]
     Active Substance: GEFITINIB
     Route: 048
     Dates: start: 201302, end: 201601
  2. GEFITINIB [Suspect]
     Active Substance: GEFITINIB
     Route: 048
     Dates: start: 201211

REACTIONS (7)
  - Hepatotoxicity [Unknown]
  - Death [Fatal]
  - Alanine aminotransferase increased [Unknown]
  - Diarrhoea [Unknown]
  - Malignant neoplasm progression [Unknown]
  - Aspartate aminotransferase increased [Unknown]
  - Rash [Unknown]

NARRATIVE: CASE EVENT DATE: 201212
